FAERS Safety Report 21488759 (Version 1)
Quarter: 2022Q4

REPORT INFORMATION
  Report Type: Report from Study
  Country: US (occurrence: US)
  Receive Date: 20221021
  Receipt Date: 20221021
  Transmission Date: 20230112
  Serious: No
  Sender: FDA-Public Use
  Company Number: US-ABBVIE-4165683

PATIENT
  Sex: Male

DRUGS (1)
  1. IMBRUVICA [Suspect]
     Active Substance: IBRUTINIB
     Indication: Waldenstrom^s macroglobulinaemia
     Route: 048
     Dates: end: 2021

REACTIONS (6)
  - Sleep disorder [Unknown]
  - Fatigue [Unknown]
  - Back pain [Unknown]
  - Blood immunoglobulin M increased [Unknown]
  - Sinus operation [Unknown]
  - Headache [Unknown]
